FAERS Safety Report 5602593-5 (Version None)
Quarter: 2008Q1

REPORT INFORMATION
  Report Type: 
  Country: None (occurrence: None)
  Receive Date: 20080125
  Receipt Date: 20080114
  Transmission Date: 20080703
  Serious: Yes (Hospitalization)
  Sender: FDA-Public Use
  Company Number: FR-BRISTOL-MYERS SQUIBB COMPANY-14053102

PATIENT
  Age: 74 Year
  Sex: Female

DRUGS (11)
  1. SKENAN PROL RELEASE GRAN CAPS 10 MG [Suspect]
     Route: 048
  2. IRBESARTAN [Suspect]
     Route: 048
  3. CARTREX [Suspect]
     Route: 048
     Dates: end: 20071123
  4. FUCIDINE CAP [Suspect]
     Indication: PERIPHERAL NERVE LESION
     Route: 048
  5. NOVATREX [Suspect]
     Route: 048
     Dates: start: 20010101, end: 20071124
  6. INIPOMP [Suspect]
     Route: 048
     Dates: end: 20071123
  7. STAGID [Concomitant]
     Indication: TYPE 2 DIABETES MELLITUS
     Route: 048
  8. GLUCOR 100 [Concomitant]
     Indication: TYPE 2 DIABETES MELLITUS
     Route: 048
  9. AMARYL [Concomitant]
     Indication: TYPE 2 DIABETES MELLITUS
     Route: 048
  10. MODUCREN [Concomitant]
     Indication: HYPERTENSION
     Route: 048
  11. VOGALENE [Concomitant]
     Route: 048

REACTIONS (1)
  - PANCYTOPENIA [None]
